FAERS Safety Report 22799188 (Version 13)
Quarter: 2025Q1

REPORT INFORMATION
  Report Type: Spontaneous
  Country: US (occurrence: US)
  Receive Date: 20230808
  Receipt Date: 20250319
  Transmission Date: 20250409
  Serious: Yes (Other)
  Sender: PFIZER
  Company Number: US-PFIZER INC-PV202300136851

PATIENT
  Age: 76 Year
  Sex: Female
  Weight: 55.329 kg

DRUGS (3)
  1. IBRANCE [Suspect]
     Active Substance: PALBOCICLIB
     Indication: Breast cancer metastatic
     Route: 048
  2. IBRANCE [Suspect]
     Active Substance: PALBOCICLIB
     Route: 048
  3. LETROZOLE [Suspect]
     Active Substance: LETROZOLE
     Indication: Breast cancer metastatic

REACTIONS (6)
  - Dementia [Unknown]
  - Thrombocytopenia [Unknown]
  - Device breakage [Unknown]
  - Lymphadenopathy [Unknown]
  - Urinary incontinence [Unknown]
  - Infection [Unknown]

NARRATIVE: CASE EVENT DATE: 20231013
